FAERS Safety Report 19351493 (Version 2)
Quarter: 2021Q2

REPORT INFORMATION
  Report Type: Spontaneous
  Country: US (occurrence: US)
  Receive Date: 20210531
  Receipt Date: 20210607
  Transmission Date: 20210717
  Serious: No
  Sender: FDA-Public Use
  Company Number: US-PFIZER INC-2021253424

PATIENT
  Age: 80 Year
  Sex: Female

DRUGS (1)
  1. GABAPENTIN. [Suspect]
     Active Substance: GABAPENTIN
     Dosage: 300 MG

REACTIONS (6)
  - Drug ineffective [Unknown]
  - Spinal disorder [Unknown]
  - Pain [Unknown]
  - Wrong product administered [Unknown]
  - Prescription drug used without a prescription [Unknown]
  - Illness [Unknown]
